FAERS Safety Report 8308778-1 (Version None)
Quarter: 2012Q2

REPORT INFORMATION
  Report Type: 
  Country: None (occurrence: None)
  Receive Date: 20120424
  Receipt Date: 20120411
  Transmission Date: 20120825
  Serious: No
  Sender: FDA-Public Use
  Company Number: JP-PFIZER INC-2012087408

PATIENT
  Age: 65 Year
  Sex: Male

DRUGS (3)
  1. CELEBREX [Suspect]
     Dosage: 200 MG, DAILY
     Route: 048
     Dates: start: 20111212
  2. JANUVIA [Suspect]
     Dosage: UNK
     Route: 048
     Dates: start: 20111213
  3. MUCOSTA [Concomitant]
     Dosage: UNK
     Route: 048

REACTIONS (2)
  - EYELID PTOSIS [None]
  - MUSCULAR WEAKNESS [None]
